FAERS Safety Report 25677613 (Version 1)
Quarter: 2025Q3

REPORT INFORMATION
  Report Type: Spontaneous
  Country: EU (occurrence: EU)
  Receive Date: 20250813
  Receipt Date: 20250813
  Transmission Date: 20251020
  Serious: Yes (Hospitalization)
  Sender: MYLAN
  Company Number: None

PATIENT
  Age: 33 Year
  Sex: Female

DRUGS (12)
  1. BUPRENORPHINE [Suspect]
     Active Substance: BUPRENORPHINE
     Indication: Drug dependence
     Dosage: 24 MILLIGRAM, QD
     Dates: start: 20240825, end: 20250531
  2. BUPRENORPHINE [Suspect]
     Active Substance: BUPRENORPHINE
     Dosage: 24 MILLIGRAM, QD
     Route: 048
     Dates: start: 20240825, end: 20250531
  3. BUPRENORPHINE [Suspect]
     Active Substance: BUPRENORPHINE
     Dosage: 24 MILLIGRAM, QD
     Route: 048
     Dates: start: 20240825, end: 20250531
  4. BUPRENORPHINE [Suspect]
     Active Substance: BUPRENORPHINE
     Dosage: 24 MILLIGRAM, QD
     Dates: start: 20240825, end: 20250531
  5. DIAZEPAM [Suspect]
     Active Substance: DIAZEPAM
     Indication: Anxiety
  6. DIAZEPAM [Suspect]
     Active Substance: DIAZEPAM
     Route: 048
  7. DIAZEPAM [Suspect]
     Active Substance: DIAZEPAM
     Route: 048
  8. DIAZEPAM [Suspect]
     Active Substance: DIAZEPAM
  9. AMPHETAMINE [Suspect]
     Active Substance: AMPHETAMINE
     Indication: Drug dependence
  10. AMPHETAMINE [Suspect]
     Active Substance: AMPHETAMINE
     Route: 048
  11. AMPHETAMINE [Suspect]
     Active Substance: AMPHETAMINE
     Route: 048
  12. AMPHETAMINE [Suspect]
     Active Substance: AMPHETAMINE

REACTIONS (4)
  - Withdrawal syndrome [Recovered/Resolved]
  - Foetal growth restriction [Recovered/Resolved]
  - Maternal exposure during pregnancy [Recovered/Resolved]
  - Term birth [Recovered/Resolved]

NARRATIVE: CASE EVENT DATE: 20240825
